FAERS Safety Report 7643030-9 (Version None)
Quarter: 2011Q3

REPORT INFORMATION
  Report Type: 
  Country: None (occurrence: None)
  Receive Date: 20110728
  Receipt Date: 20110719
  Transmission Date: 20111222
  Serious: Yes (Hospitalization, Other)
  Sender: FDA-Public Use
  Company Number: US-RB-026776-11

PATIENT
  Age: 24 Year
  Sex: Male

DRUGS (4)
  1. SUBOXONE [Suspect]
     Indication: DRUG DEPENDENCE
     Route: 060
     Dates: start: 20091201, end: 20100101
  2. SUBOXONE [Suspect]
     Indication: DRUG DEPENDENCE
     Dosage: SUBLINGUAL FILM
     Route: 060
     Dates: start: 20100101, end: 20110401
  3. PAXIL [Suspect]
     Indication: DEPRESSION
     Dosage: DOSAGE INFORMATION UNKNOWN
     Route: 048
     Dates: start: 20110501
  4. SUBOXONE [Suspect]
     Dosage: SUBLINGUAL FILM- DOCTOR HAS BEEN TAPERING HIM
     Route: 060
     Dates: start: 20110501

REACTIONS (17)
  - APATHY [None]
  - IMPAIRED HEALING [None]
  - SUICIDAL IDEATION [None]
  - FACIAL BONES FRACTURE [None]
  - DEPRESSION [None]
  - INTENTIONAL OVERDOSE [None]
  - ROAD TRAFFIC ACCIDENT [None]
  - DRUG WITHDRAWAL SYNDROME [None]
  - DECREASED APPETITE [None]
  - PAIN [None]
  - DRUG DEPENDENCE [None]
  - UPPER LIMB FRACTURE [None]
  - FATIGUE [None]
  - WEIGHT DECREASED [None]
  - FALL [None]
  - DECREASED INTEREST [None]
  - SOMNOLENCE [None]
